FAERS Safety Report 12368335 (Version 2)
Quarter: 2016Q2

REPORT INFORMATION
  Report Type: Spontaneous
  Country: US (occurrence: US)
  Receive Date: 20160513
  Receipt Date: 20160519
  Transmission Date: 20160815
  Serious: Yes (Life-Threatening, Hospitalization, Other)
  Sender: FDA-Public Use
  Company Number: US-TEVA-659703USA

PATIENT
  Age: 79 Year
  Sex: Male
  Weight: 83.99 kg

DRUGS (2)
  1. SYNRIBO [Suspect]
     Active Substance: OMACETAXINE MEPESUCCINATE
     Indication: CHRONIC MYELOID LEUKAEMIA
     Dosage: HOME ADMINISTRATION
     Route: 058
     Dates: start: 201604, end: 2016
  2. GLEEVEC [Concomitant]
     Active Substance: IMATINIB MESYLATE
     Indication: CHRONIC MYELOID LEUKAEMIA

REACTIONS (7)
  - Adverse event [Unknown]
  - Dyspnoea [Unknown]
  - Alopecia [Unknown]
  - Bone marrow failure [Unknown]
  - Hospitalisation [Unknown]
  - Fatigue [Unknown]
  - Blast cell count decreased [Unknown]

NARRATIVE: CASE EVENT DATE: 201604
